FAERS Safety Report 16379775 (Version 2)
Quarter: 2019Q2

REPORT INFORMATION
  Report Type: Spontaneous
  Country: JP (occurrence: JP)
  Receive Date: 20190531
  Receipt Date: 20190531
  Transmission Date: 20190711
  Serious: Yes (Death, Other)
  Sender: FDA-Public Use
  Company Number: PHHY2019JP125346

PATIENT
  Age: 36 Year
  Sex: Male

DRUGS (1)
  1. PREDNISOLONE. [Suspect]
     Active Substance: PREDNISOLONE
     Indication: ORGANISING PNEUMONIA
     Dosage: UNK MG/KG, UNK
     Route: 065

REACTIONS (9)
  - Progressive multifocal leukoencephalopathy [Fatal]
  - Disorientation [Fatal]
  - Pyrexia [Recovering/Resolving]
  - Paraparesis [Recovering/Resolving]
  - Cognitive disorder [Fatal]
  - JC virus infection [Unknown]
  - Condition aggravated [Unknown]
  - Dermatitis bullous [Recovering/Resolving]
  - Herpes zoster meningoencephalitis [Recovering/Resolving]
